FAERS Safety Report 6941466-2 (Version None)
Quarter: 2010Q3

REPORT INFORMATION
  Report Type: 
  Country: None (occurrence: None)
  Receive Date: 20100824
  Receipt Date: 20100824
  Transmission Date: 20110219
  Serious: Yes (Life-Threatening, Hospitalization, Disabling, Other)
  Sender: FDA-Public Use
  Company Number: None

PATIENT
  Age: 84 Year
  Sex: Female
  Weight: 88.6 kg

DRUGS (1)
  1. BARIUM SULFATE [Suspect]
     Indication: HAEMORRHAGE
     Dates: start: 20100602

REACTIONS (3)
  - DRUG HYPERSENSITIVITY [None]
  - FEELING ABNORMAL [None]
  - PAIN IN EXTREMITY [None]
